FAERS Safety Report 25795375 (Version 1)
Quarter: 2025Q3

REPORT INFORMATION
  Report Type: Report from Study
  Country: US (occurrence: US)
  Receive Date: 20250912
  Receipt Date: 20250912
  Transmission Date: 20251020
  Serious: No
  Sender: SUNOVION
  Company Number: US-SUMITOMO PHARMA SWITZERLAND GMBH-2025SPA011378

PATIENT
  Age: 66 Year
  Sex: Male

DRUGS (4)
  1. ORGOVYX [Suspect]
     Active Substance: RELUGOLIX
     Indication: Prostate cancer
     Route: 048
  2. ORGOVYX [Suspect]
     Active Substance: RELUGOLIX
     Route: 048
  3. BRUKINSA [Concomitant]
     Active Substance: ZANUBRUTINIB
  4. CLONAZEPAM [Concomitant]
     Active Substance: CLONAZEPAM

REACTIONS (5)
  - Blood pressure abnormal [Recovering/Resolving]
  - Weight decreased [Recovered/Resolved]
  - Night sweats [Recovered/Resolved]
  - Hot flush [Unknown]
  - Bone pain [Recovering/Resolving]
